FAERS Safety Report 25483428 (Version 1)
Quarter: 2025Q2

REPORT INFORMATION
  Report Type: Spontaneous
  Country: US (occurrence: US)
  Receive Date: 20250626
  Receipt Date: 20250626
  Transmission Date: 20250717
  Serious: Yes (Hospitalization)
  Sender: ROCHE
  Company Number: US-ROCHE-10000321979

PATIENT
  Age: 48 Year
  Sex: Male

DRUGS (1)
  1. XOLAIR [Suspect]
     Active Substance: OMALIZUMAB
     Indication: Urticaria chronic
     Dosage: 2 INJECTIONS AT THE VISIT, 150 MG EACH, FOR A TOTAL OF 300 MG EVERY MONTH
     Route: 058
     Dates: start: 2025, end: 2025

REACTIONS (5)
  - Swelling face [Unknown]
  - Dysphagia [Unknown]
  - Rash [Unknown]
  - Pruritus [Unknown]
  - Confusional state [Unknown]

NARRATIVE: CASE EVENT DATE: 20250601
